FAERS Safety Report 5747492-3 (Version None)
Quarter: 2008Q2

REPORT INFORMATION
  Report Type: 
  Country: None (occurrence: None)
  Receive Date: 20080523
  Receipt Date: 20080513
  Transmission Date: 20081010
  Serious: Yes (Hospitalization)
  Sender: FDA-Public Use
  Company Number: US-ROCHE-561210

PATIENT
  Sex: Female
  Weight: 55.3 kg

DRUGS (5)
  1. BONIVA [Suspect]
     Indication: OSTEOPOROSIS
     Dosage: DOSE REPORTED: 3 MOS
     Route: 042
     Dates: start: 20061201
  2. AVENA [Concomitant]
     Dosage: DRUG REPORTED AS AVAVA.
  3. PLAQUENIL [Concomitant]
  4. METHOTREXATE [Concomitant]
  5. SYNTHROID [Concomitant]

REACTIONS (1)
  - PANCREATITIS [None]
